FAERS Safety Report 6041949-6 (Version None)
Quarter: 2009Q1

REPORT INFORMATION
  Report Type: 
  Country: None (occurrence: None)
  Receive Date: 20090116
  Receipt Date: 20090107
  Transmission Date: 20090719
  Serious: Yes (Other)
  Sender: FDA-Public Use
  Company Number: JP-ROCHE-605396

PATIENT
  Sex: Female

DRUGS (1)
  1. TAMIFLU [Suspect]
     Indication: INFLUENZA
     Dosage: DRUG NAME REPORTED AS TAMIFLU DRY SYRUP 3%
     Route: 048
     Dates: start: 20081206, end: 20081206

REACTIONS (1)
  - ABNORMAL BEHAVIOUR [None]
